FAERS Safety Report 5829038-4 (Version None)
Quarter: 2008Q3

REPORT INFORMATION
  Report Type: 
  Country: None (occurrence: None)
  Receive Date: 20080731
  Receipt Date: 20070925
  Transmission Date: 20090109
  Serious: No
  Sender: FDA-Public Use
  Company Number: US-BRISTOL-MYERS SQUIBB COMPANY-13919915

PATIENT

DRUGS (1)
  1. TEQUIN [Suspect]

REACTIONS (1)
  - INJURY [None]
